FAERS Safety Report 8887244 (Version 1)
Quarter: 2012Q4

REPORT INFORMATION
  Report Type: 
  Country: CA (occurrence: CA)
  Receive Date: 20121101
  Receipt Date: 20121101
  Transmission Date: 20130627
  Serious: Yes (Other)
  Sender: FDA-Public Use
  Company Number: CA-ROCHE-GNE286340

PATIENT
  Sex: Male
  Weight: 59.06 kg

DRUGS (4)
  1. XOLAIR [Suspect]
     Indication: ASTHMA
     Dosage: 300 mg, Q2W
     Route: 058
     Dates: start: 20071218
  2. XOLAIR [Suspect]
     Dosage: 375 mg, Q2W
     Route: 058
     Dates: start: 20090708
  3. XOLAIR [Suspect]
     Dosage: 300 mg, Q2W
     Route: 058
     Dates: start: 20100223
  4. XOLAIR [Suspect]
     Route: 058
     Dates: start: 20121023

REACTIONS (8)
  - Asthma [Recovering/Resolving]
  - Dyspnoea [Unknown]
  - Nasopharyngitis [Unknown]
  - Chest pain [Unknown]
  - Rales [Unknown]
  - Productive cough [Unknown]
  - Sinusitis [Unknown]
  - Nasal congestion [Unknown]
